FAERS Safety Report 7579747-4 (Version None)
Quarter: 2011Q2

REPORT INFORMATION
  Report Type: 
  Country: None (occurrence: None)
  Receive Date: 20110629
  Receipt Date: 20110613
  Transmission Date: 20111010
  Serious: No
  Sender: FDA-Public Use
  Company Number: US-B.I. PHARMACEUTICALS,INC./RIDGEFIELD-2011-BP-15267BP

PATIENT
  Sex: Male

DRUGS (7)
  1. ALLOPURINOL [Concomitant]
     Indication: GOUT
  2. PRADAXA [Suspect]
     Indication: ATRIAL FIBRILLATION
     Dosage: 300 MG
     Route: 048
     Dates: start: 20110602, end: 20110606
  3. LIPITOR [Concomitant]
     Indication: BLOOD CHOLESTEROL INCREASED
  4. SULAR [Concomitant]
  5. ASPIRIN [Concomitant]
     Indication: ROUTINE HEALTH MAINTENANCE
     Dosage: 81 MG
  6. BISOPROLOL [Concomitant]
  7. LASIX [Concomitant]

REACTIONS (5)
  - OEDEMA PERIPHERAL [None]
  - WEIGHT DECREASED [None]
  - AGEUSIA [None]
  - ANOSMIA [None]
  - DYSPEPSIA [None]
